FAERS Safety Report 7710080-3 (Version None)
Quarter: 2011Q3

REPORT INFORMATION
  Report Type: 
  Country: None (occurrence: None)
  Receive Date: 20110825
  Receipt Date: 20110822
  Transmission Date: 20111222
  Serious: Yes (Life-Threatening, Other)
  Sender: FDA-Public Use
  Company Number: PHEH2011US02269

PATIENT
  Sex: Female

DRUGS (2)
  1. GLEEVEC [Suspect]
     Dosage: 400 MG,
  2. SPRYCEL [Suspect]

REACTIONS (6)
  - PNEUMONIA [None]
  - HAEMORRHAGE [None]
  - LUNG INFECTION [None]
  - PULMONARY OEDEMA [None]
  - ANAEMIA [None]
  - NASOPHARYNGITIS [None]
